FAERS Safety Report 18538334 (Version 3)
Quarter: 2021Q1

REPORT INFORMATION
  Report Type: Spontaneous
  Country: US (occurrence: US)
  Receive Date: 20201123
  Receipt Date: 20210115
  Transmission Date: 20210419
  Serious: Yes (Death, Hospitalization, Other)
  Sender: FDA-Public Use
  Company Number: US-GILEAD-2020-0505420

PATIENT
  Age: 91 Year
  Sex: Male
  Weight: 63.5 kg

DRUGS (32)
  1. DECADRON [Concomitant]
     Active Substance: DEXAMETHASONE
  2. CHLORHEXIDINE [Concomitant]
     Active Substance: CHLORHEXIDINE
     Dosage: UNK
     Dates: start: 20201116
  3. ETOMIDATE. [Concomitant]
     Active Substance: ETOMIDATE
     Dosage: UNK
     Dates: start: 20201116, end: 20201116
  4. LIPITOR [Concomitant]
     Active Substance: ATORVASTATIN CALCIUM
  5. CLOPIDOGREL [Concomitant]
     Active Substance: CLOPIDOGREL BISULFATE
     Dosage: UNK
     Dates: start: 20201116
  6. TYLENOL [Concomitant]
     Active Substance: ACETAMINOPHEN
  7. DEXAMETHASONE. [Concomitant]
     Active Substance: DEXAMETHASONE
     Dosage: UNK
     Dates: start: 20201115
  8. MIDAZOLAM. [Concomitant]
     Active Substance: MIDAZOLAM
  9. VEKLURY [Suspect]
     Active Substance: REMDESIVIR
     Indication: COVID-19
     Dosage: 200 MG, ONCE
     Route: 042
     Dates: start: 20201116, end: 20201116
  10. CEFAZOLIN [Concomitant]
     Active Substance: CEFAZOLIN
  11. PIPERACILLIN AND TAZOBACTAM [Concomitant]
     Active Substance: PIPERACILLIN SODIUM\TAZOBACTAM SODIUM
     Dosage: UNK
     Dates: start: 20201115, end: 20201117
  12. VANCOMYCIN [Concomitant]
     Active Substance: VANCOMYCIN
     Dosage: UNK
     Dates: start: 20201116, end: 20201117
  13. ALBUTEROL;IPRATROPIUM [Concomitant]
     Active Substance: ALBUTEROL\IPRATROPIUM
     Dosage: UNK
     Dates: start: 20201116
  14. PROPOFOL. [Concomitant]
     Active Substance: PROPOFOL
     Dosage: UNK
     Dates: start: 20201116
  15. ASPIRIN [ACETYLSALICYLIC ACID] [Concomitant]
     Active Substance: ASPIRIN
     Dosage: UNK
     Dates: start: 20201116
  16. LOPID [Concomitant]
     Active Substance: GEMFIBROZIL
  17. CALMOSEPTINE [MENTHOL;ZINC OXIDE] [Concomitant]
  18. CODEINE [Concomitant]
     Active Substance: CODEINE
  19. NAPROSYN [Concomitant]
     Active Substance: NAPROXEN
  20. NIACIN. [Concomitant]
     Active Substance: NIACIN
  21. BREO ELLIPTA [Concomitant]
     Active Substance: FLUTICASONE FUROATE\VILANTEROL TRIFENATATE
  22. VECURONIUM [Concomitant]
     Active Substance: VECURONIUM BROMIDE
  23. ACETAMINOPHEN. [Concomitant]
     Active Substance: ACETAMINOPHEN
     Dosage: UNK
     Dates: start: 20201115, end: 20201115
  24. GLUCOSE [Concomitant]
     Active Substance: DEXTROSE
  25. SULINDAC. [Concomitant]
     Active Substance: SULINDAC
  26. GABAPENTIN. [Concomitant]
     Active Substance: GABAPENTIN
  27. FENTANYL. [Concomitant]
     Active Substance: FENTANYL
     Dosage: UNK
     Dates: start: 20201116
  28. INSULIN [Concomitant]
     Active Substance: INSULIN NOS
     Dosage: UNK
     Dates: start: 20201116, end: 20201116
  29. PLASMA [Concomitant]
     Active Substance: HUMAN PLASMA
  30. TRAMADOL. [Concomitant]
     Active Substance: TRAMADOL
  31. SODIUM BICARBONATE. [Concomitant]
     Active Substance: SODIUM BICARBONATE
     Dosage: UNK
     Dates: start: 20201116
  32. ZOSYN [Concomitant]
     Active Substance: PIPERACILLIN SODIUM\TAZOBACTAM SODIUM

REACTIONS (12)
  - Myocardial infarction [Recovered/Resolved]
  - Sepsis [Recovered/Resolved]
  - Cardiac failure [Unknown]
  - Acute respiratory failure [Not Recovered/Not Resolved]
  - Acute kidney injury [Fatal]
  - Cardiogenic shock [Recovered/Resolved]
  - Bradycardia [Recovered/Resolved]
  - Hypotension [Recovered/Resolved]
  - Shock [Recovered/Resolved]
  - COVID-19 pneumonia [Fatal]
  - Acute myocardial infarction [Fatal]
  - Metabolic acidosis [Recovered/Resolved]

NARRATIVE: CASE EVENT DATE: 20201116
